FAERS Safety Report 5055528-0 (Version None)
Quarter: 2006Q3

REPORT INFORMATION
  Report Type: 
  Country: None (occurrence: None)
  Receive Date: 20060719
  Receipt Date: 20060623
  Transmission Date: 20061208
  Serious: Yes (Other)
  Sender: FDA-Public Use
  Company Number: US-MERCK-0606USA04445

PATIENT
  Age: 70 Year
  Sex: Female

DRUGS (4)
  1. PRINIVIL [Suspect]
     Route: 048
  2. ATENOLOL [Suspect]
     Route: 048
  3. IMDUR [Suspect]
     Route: 065
  4. PLAVIX [Concomitant]
     Route: 065

REACTIONS (4)
  - CARDIAC FAILURE CONGESTIVE [None]
  - CARDIOVASCULAR DISORDER [None]
  - CORONARY ARTERY DISEASE [None]
  - DIABETES MELLITUS [None]
